FAERS Safety Report 21542516 (Version 1)
Quarter: 2022Q4

REPORT INFORMATION
  Report Type: Spontaneous
  Country: CN (occurrence: CN)
  Receive Date: 20221102
  Receipt Date: 20221102
  Transmission Date: 20230113
  Serious: Yes (Hospitalization)
  Sender: FDA-Public Use
  Company Number: ALC2022CN004999

PATIENT
  Age: 66 Year
  Sex: Female
  Weight: 68 kg

DRUGS (1)
  1. PROPARACAINE HYDROCHLORIDE [Suspect]
     Active Substance: PROPARACAINE HYDROCHLORIDE
     Indication: Anaesthesia eye
     Dosage: 1 DRP 5 TIMES A DAY
     Dates: start: 20221012, end: 20221012

REACTIONS (1)
  - Corneal opacity [Recovering/Resolving]

NARRATIVE: CASE EVENT DATE: 20221014
